FAERS Safety Report 14184574 (Version 1)
Quarter: 2017Q4

REPORT INFORMATION
  Report Type: Not Available
  Country: None (occurrence: US)
  Receive Date: 20171113
  Receipt Date: 20171113
  Transmission Date: 20180321
  Serious: No
  Sender: FDA-Public Use
  Company Number: US-AKORN-72645

PATIENT
  Sex: Male

DRUGS (1)
  1. ATROPINE. [Suspect]
     Active Substance: ATROPINE

REACTIONS (1)
  - Vision blurred [None]
